FAERS Safety Report 9744080 (Version 5)
Quarter: 2014Q1

REPORT INFORMATION
  Report Type: Spontaneous
  Country: GB (occurrence: GB)
  Receive Date: 20131210
  Receipt Date: 20140206
  Transmission Date: 20141002
  Serious: Yes (Death, Hospitalization, Disabling)
  Sender: FDA-Public Use
  Company Number: PHHY2013GB137281

PATIENT
  Age: 71 Year
  Sex: Female
  Weight: 70 kg

DRUGS (18)
  1. METOPROLOL [Suspect]
     Indication: ATRIAL FIBRILLATION
     Dosage: 25 MG, TID (HALF OF 50 MG TABLET)
     Route: 048
     Dates: start: 20130517, end: 20130517
  2. METOPROLOL [Suspect]
     Dosage: 25 MG, TID
     Route: 048
     Dates: start: 20130520, end: 20130520
  3. AMIODARONE [Suspect]
     Indication: CARDIAC ARREST
     Dosage: 200 MG, QD
  4. AMIODARONE [Suspect]
     Dosage: 200 MG, UNK
     Dates: start: 20130517
  5. AMIODARONE [Suspect]
     Dosage: 200 UNK, UNK
     Dates: start: 20130519
  6. AMIODARONE [Suspect]
     Dosage: 200 UNK, UNK
     Dates: start: 20130520
  7. LISINOPRIL [Concomitant]
     Dosage: 10 MG, BID
     Dates: start: 20130517
  8. LISINOPRIL [Concomitant]
     Dosage: 10 MG, UNK
     Dates: start: 20130519
  9. LISINOPRIL [Concomitant]
     Dosage: 10 MG, UNK
     Dates: start: 20130520
  10. BUMETANIDE [Concomitant]
     Indication: CARDIAC FAILURE CONGESTIVE
     Dosage: 1 MG, UNK
     Dates: start: 20130517
  11. BUMETANIDE [Concomitant]
     Dosage: 1 MG, BID
     Dates: start: 20130519
  12. BUMETANIDE [Concomitant]
     Dosage: 1 MG, UNK
     Dates: start: 20130520
  13. LEVOTHYROXINE [Concomitant]
     Dosage: 25 UG, QD
  14. SALBUTAMOL [Concomitant]
     Dates: start: 1982
  15. BECLOMETHASONE DIPROPIONATE [Concomitant]
     Indication: WHEEZING
     Dates: start: 1982
  16. BECLOMETHASONE DIPROPIONATE [Concomitant]
     Indication: ASTHMA
  17. SPEKTRAMOX [Concomitant]
  18. ANTIBIOTICS [Concomitant]

REACTIONS (26)
  - Renal failure [Fatal]
  - Ejection fraction decreased [Unknown]
  - Blood pressure decreased [Unknown]
  - Cardiac failure [Unknown]
  - Loss of consciousness [Recovered/Resolved]
  - Blood pressure abnormal [Recovered/Resolved]
  - Blood pressure immeasurable [Recovered/Resolved]
  - Cardiogenic shock [Unknown]
  - Cold sweat [Unknown]
  - Cyanosis [Recovered/Resolved]
  - Feeling cold [Unknown]
  - Fluid imbalance [Unknown]
  - Heart rate abnormal [Not Recovered/Not Resolved]
  - Hypotension [Unknown]
  - Hypoxia [Not Recovered/Not Resolved]
  - Labelled drug-drug interaction medication error [Unknown]
  - Dyspnoea [Recovered/Resolved]
  - Lactic acidosis [Unknown]
  - Pulse abnormal [Recovered/Resolved]
  - Pulse abnormal [Not Recovered/Not Resolved]
  - Shock [Unknown]
  - Hyperhidrosis [Unknown]
  - Syncope [Recovered/Resolved]
  - Dizziness [Recovering/Resolving]
  - Circulatory collapse [Unknown]
  - Wrong technique in drug usage process [Unknown]
